FAERS Safety Report 22201899 (Version 11)
Quarter: 2024Q3

REPORT INFORMATION
  Report Type: Report from Study
  Country: CO (occurrence: CO)
  Receive Date: 20230412
  Receipt Date: 20240808
  Transmission Date: 20241017
  Serious: Yes (Hospitalization, Other)
  Sender: NOVARTIS
  Company Number: CO-002147023-NVSC2023CO081483

PATIENT
  Sex: Female
  Weight: 63 kg

DRUGS (6)
  1. KISQALI [Suspect]
     Active Substance: RIBOCICLIB
     Indication: Hormone receptor positive HER2 negative breast cancer
     Dosage: 600 MG, QD
     Route: 048
     Dates: start: 20230307, end: 202306
  2. KISQALI [Suspect]
     Active Substance: RIBOCICLIB
     Dosage: 600 MG, QD (STARTED 21 DAY CYCLE)
     Route: 048
     Dates: start: 20230405, end: 20231009
  3. KISQALI [Suspect]
     Active Substance: RIBOCICLIB
     Dosage: 3 DOSAGE FORM, QD
     Route: 048
  4. FULVESTRANT [Suspect]
     Active Substance: FULVESTRANT
     Indication: Breast cancer
     Dosage: UNK, QMO
     Route: 065
  5. FULVESTRANT [Suspect]
     Active Substance: FULVESTRANT
     Indication: Bone disorder
  6. ZOLEDRONIC ACID [Suspect]
     Active Substance: ZOLEDRONIC ACID
     Indication: Neoplasm malignant
     Dosage: UNK, EVERY 3 MONTHS
     Route: 042
     Dates: start: 20230307

REACTIONS (16)
  - Mouth injury [Unknown]
  - Gastrointestinal infection [Unknown]
  - General physical condition abnormal [Unknown]
  - Vomiting [Unknown]
  - Burning sensation [Unknown]
  - Lymphoedema [Unknown]
  - Intestinal obstruction [Unknown]
  - Metastases to bone [Unknown]
  - Illness [Not Recovered/Not Resolved]
  - Breast pain [Unknown]
  - Breast inflammation [Unknown]
  - Erythema [Unknown]
  - Decreased immune responsiveness [Unknown]
  - Amputation stump pain [Unknown]
  - Off label use [Unknown]
  - Oxygen saturation decreased [Unknown]
